FAERS Safety Report 24800455 (Version 1)
Quarter: 2025Q1

REPORT INFORMATION
  Report Type: Spontaneous
  Country: US (occurrence: None)
  Receive Date: 20250101
  Receipt Date: 20250101
  Transmission Date: 20250408
  Serious: Yes (Other)
  Sender: FDA-CTU
  Company Number: None

PATIENT
  Age: 48 Year
  Sex: Male
  Weight: 114.75 kg

DRUGS (9)
  1. FINASTERIDE [Suspect]
     Active Substance: FINASTERIDE
     Indication: Androgenetic alopecia
     Route: 048
  2. Simply nature fruits and veggies [Concomitant]
  3. OMEGA 3 [Concomitant]
     Active Substance: CAPSAICIN
  4. MAGNESIUM [Concomitant]
     Active Substance: MAGNESIUM
  5. SELENIUM [Concomitant]
     Active Substance: SELENIUM
  6. VITAMIN B COMPLEX [Concomitant]
     Active Substance: CYANOCOBALAMIN\DEXPANTHENOL\NIACINAMIDE\PYRIDOXINE HYDROCHLORIDE\RIBOFLAVIN 5^-PHOSPHATE SODIUM\THIA
  7. VITAMIN D NOS [Concomitant]
     Active Substance: CHOLECALCIFEROL\ERGOCALCIFEROL
  8. ZINC [Concomitant]
     Active Substance: ZINC
  9. VITAMINS [Concomitant]
     Active Substance: VITAMINS

REACTIONS (15)
  - Pain [None]
  - Male sexual dysfunction [None]
  - Erectile dysfunction [None]
  - Semen volume abnormal [None]
  - Weight increased [None]
  - Genital atrophy [None]
  - Brain fog [None]
  - Amnesia [None]
  - Stress [None]
  - Tinnitus [None]
  - Anxiety [None]
  - Panic attack [None]
  - Suicidal ideation [None]
  - Insomnia [None]
  - Emotional distress [None]

NARRATIVE: CASE EVENT DATE: 20241206
